FAERS Safety Report 7241007-9 (Version None)
Quarter: 2011Q1

REPORT INFORMATION
  Report Type: 
  Country: None (occurrence: None)
  Receive Date: 20110108
  Receipt Date: 20110108
  Transmission Date: 20110831
  Serious: Yes (Hospitalization)
  Sender: FDA-Public Use
  Company Number: None

PATIENT
  Sex: Female

DRUGS (2)
  1. TRAMADOL HCL [Suspect]
     Indication: HEADACHE
     Dosage: TRAMADOL QID ORAL (DEC TO EARLY JAN 2011)
     Route: 048
  2. TRAMADOL HCL [Suspect]
     Indication: NECK PAIN
     Dosage: TRAMADOL QID ORAL (DEC TO EARLY JAN 2011)
     Route: 048

REACTIONS (5)
  - DEPRESSION [None]
  - SUICIDAL IDEATION [None]
  - ANXIETY [None]
  - NAUSEA [None]
  - WEIGHT DECREASED [None]
